FAERS Safety Report 24385259 (Version 1)
Quarter: 2024Q3

REPORT INFORMATION
  Report Type: Spontaneous
  Country: US (occurrence: None)
  Receive Date: 20240930
  Receipt Date: 20240930
  Transmission Date: 20241017
  Serious: Yes (Life-Threatening, Hospitalization)
  Sender: Public
  Company Number: None

PATIENT
  Age: 31 Year
  Sex: Female
  Weight: 69.75 kg

DRUGS (7)
  1. PEGCETACOPLAN [Suspect]
     Active Substance: PEGCETACOPLAN
     Indication: Thrombotic microangiopathy
     Dosage: 1080 MG TWICE WEEKLY SUBCUTANEOUS
     Route: 058
     Dates: start: 20240223
  2. BELATACEPT [Suspect]
     Active Substance: BELATACEPT
     Dates: start: 20240329
  3. MYFORTIC [Suspect]
     Active Substance: MYCOPHENOLATE SODIUM
     Dates: start: 20240715, end: 20240921
  4. PREDNISONE [Suspect]
     Active Substance: PREDNISONE
     Dates: start: 20231128
  5. PENICILLIN [Suspect]
     Active Substance: PENICILLIN
  6. MYFORTIC [Concomitant]
     Active Substance: MYCOPHENOLATE SODIUM
  7. PRDNISONE [Concomitant]

REACTIONS (8)
  - Enterococcal infection [None]
  - Endocarditis [None]
  - Arthralgia [None]
  - Arthralgia [None]
  - Osteonecrosis [None]
  - Mitral valve disease [None]
  - Aortic valve disease [None]
  - Therapy interrupted [None]

NARRATIVE: CASE EVENT DATE: 20240923
